FAERS Safety Report 14626913 (Version 1)
Quarter: 2018Q1

REPORT INFORMATION
  Report Type: Spontaneous
  Country: PT (occurrence: PT)
  Receive Date: 20180312
  Receipt Date: 20180312
  Transmission Date: 20180509
  Serious: Yes (Other)
  Sender: FDA-Public Use
  Company Number: PT-SA-2018SA064452

PATIENT
  Age: 78 Year
  Sex: Male

DRUGS (2)
  1. JEVTANA [Suspect]
     Active Substance: CABAZITAXEL
     Indication: PROSTATE CANCER
     Route: 048
     Dates: start: 201706, end: 201711
  2. DENOSUMAB [Concomitant]
     Active Substance: DENOSUMAB
     Route: 065
     Dates: start: 201704

REACTIONS (8)
  - Dysgeusia [Unknown]
  - Leukocytosis [Unknown]
  - Prostatic specific antigen increased [Not Recovered/Not Resolved]
  - Condition aggravated [Not Recovered/Not Resolved]
  - Anaemia [Unknown]
  - Blood alkaline phosphatase increased [Not Recovered/Not Resolved]
  - Pain [Not Recovered/Not Resolved]
  - Eastern Cooperative Oncology Group performance status worsened [Not Recovered/Not Resolved]

NARRATIVE: CASE EVENT DATE: 201707
